FAERS Safety Report 9479147 (Version 1)
Quarter: 2013Q3

REPORT INFORMATION
  Report Type: Report from Study
  Country: FR (occurrence: FR)
  Receive Date: 20130827
  Receipt Date: 20130827
  Transmission Date: 20140515
  Serious: Yes (Hospitalization)
  Sender: FDA-Public Use
  Company Number: FR-BRISTOL-MYERS SQUIBB COMPANY-19208032

PATIENT
  Age: 64 Year
  Sex: Female

DRUGS (6)
  1. CARBOPLATIN [Suspect]
     Indication: OVARIAN CANCER
     Route: 042
     Dates: start: 20130716
  2. PACLITAXEL [Suspect]
     Indication: OVARIAN CANCER
     Route: 042
     Dates: start: 20130716
  3. BEVACIZUMAB [Suspect]
     Indication: OVARIAN CANCER
     Route: 042
     Dates: start: 20130716
  4. SOLUPRED [Concomitant]
     Indication: PROPHYLAXIS
     Route: 048
     Dates: start: 20130717
  5. VOGALENE [Concomitant]
     Indication: PROPHYLAXIS
     Route: 048
     Dates: start: 20130717
  6. ZOPHREN [Concomitant]
     Indication: PROPHYLAXIS
     Route: 048
     Dates: start: 20130717

REACTIONS (1)
  - Subcutaneous abscess [Recovered/Resolved]
